FAERS Safety Report 7472703-6 (Version None)
Quarter: 2011Q2

REPORT INFORMATION
  Report Type: 
  Country: None (occurrence: None)
  Receive Date: 20110502
  Receipt Date: 20110419
  Transmission Date: 20111010
  Serious: Yes (Hospitalization)
  Sender: FDA-Public Use
  Company Number: 2010SP065557

PATIENT
  Age: 38 Year
  Sex: Female
  Weight: 68.0396 kg

DRUGS (1)
  1. NUVARING [Suspect]
     Indication: PRODUCT USED FOR UNKNOWN INDICATION
     Dosage: QM
     Dates: start: 20060101, end: 20090101

REACTIONS (3)
  - MULTIPLE INJURIES [None]
  - PAIN [None]
  - ACUTE MYOCARDIAL INFARCTION [None]
